FAERS Safety Report 9353122 (Version 1)
Quarter: 2013Q2

REPORT INFORMATION
  Report Type: Spontaneous
  Country: US (occurrence: None)
  Receive Date: 20130617
  Receipt Date: 20130617
  Transmission Date: 20140414
  Serious: Yes (Hospitalization)
  Sender: FDA-Public Use
  Company Number: None

PATIENT
  Age: 17 Year
  Sex: Female

DRUGS (1)
  1. HUMIRA [Suspect]
     Indication: PSORIATIC ARTHROPATHY
     Dosage: Q2WKS
     Route: 058
     Dates: start: 20130523

REACTIONS (6)
  - Pyrexia [None]
  - Nausea [None]
  - Sinus headache [None]
  - Secretion discharge [None]
  - Lymphadenopathy [None]
  - Liver function test abnormal [None]
